FAERS Safety Report 12481718 (Version 1)
Quarter: 2016Q2

REPORT INFORMATION
  Report Type: Report from Study
  Country: MX (occurrence: MX)
  Receive Date: 20160620
  Receipt Date: 20160620
  Transmission Date: 20160815
  Serious: Yes (Other)
  Sender: FDA-Public Use
  Company Number: PHHY2016MX075141

PATIENT
  Sex: Female

DRUGS (3)
  1. PHENYTOIN SODIUM. [Concomitant]
     Active Substance: PHENYTOIN SODIUM
     Indication: PRODUCT USED FOR UNKNOWN INDICATION
     Dosage: 3 DF, QD (1 IN THE MORNING, 1 IN THE AFTERNOON AND 1 AT NIGHT) 10 YEARS AGO
     Route: 048
  2. FRISIUM [Concomitant]
     Active Substance: CLOBAZAM
     Indication: PRODUCT USED FOR UNKNOWN INDICATION
     Dosage: 10 MG, Q12H STARTED ON 10 YEARS AGO
     Route: 048
  3. TRILEPTAL [Suspect]
     Active Substance: OXCARBAZEPINE
     Indication: SEIZURE
     Dosage: 2.75 DF, (1 IN THE MORNING, 0.75 IN THE AFTERNOON AND 1 AT NIGHT)
     Route: 065

REACTIONS (13)
  - Fall [Unknown]
  - Enuresis [Unknown]
  - Seizure [Unknown]
  - Gastritis [Recovered/Resolved]
  - Lower limb fracture [Unknown]
  - Gastrooesophageal reflux disease [Recovered/Resolved]
  - Cerebral disorder [Unknown]
  - Wrong technique in product usage process [Not Recovered/Not Resolved]
  - Gait disturbance [Unknown]
  - Abnormal behaviour [Unknown]
  - Feeding disorder [Unknown]
  - Foot fracture [Unknown]
  - Malaise [Unknown]
